FAERS Safety Report 12109255 (Version 1)
Quarter: 2016Q1

REPORT INFORMATION
  Report Type: Spontaneous
  Country: US (occurrence: None)
  Receive Date: 20160222
  Receipt Date: 20160222
  Transmission Date: 20160526
  Serious: Yes (Hospitalization)
  Sender: FDA-Public Use
  Company Number: None

PATIENT
  Age: 59 Year
  Sex: Male

DRUGS (6)
  1. SULFAMETHOXAZOLE/TRIMETHOPRIM [Suspect]
     Active Substance: SULFAMETHOXAZOLE\TRIMETHOPRIM
     Indication: PROPHYLAXIS
     Dosage: DS 800/160
     Route: 048
     Dates: start: 20151123, end: 20151215
  2. AMOXICILLIN. [Concomitant]
     Active Substance: AMOXICILLIN
  3. GABAPENTIN. [Concomitant]
     Active Substance: GABAPENTIN
  4. RABEPRAZOLE [Concomitant]
     Active Substance: RABEPRAZOLE
  5. SENNA [Concomitant]
     Active Substance: SENNA LEAF\SENNOSIDES\SENNOSIDES A AND B
  6. ACETAMINOPHEN. [Concomitant]
     Active Substance: ACETAMINOPHEN

REACTIONS (6)
  - Drug reaction with eosinophilia and systemic symptoms [None]
  - Swollen tongue [None]
  - Chills [None]
  - Oropharyngeal pain [None]
  - Lip swelling [None]
  - Malaise [None]

NARRATIVE: CASE EVENT DATE: 20151215
